FAERS Safety Report 19452841 (Version 2)
Quarter: 2021Q3

REPORT INFORMATION
  Report Type: Spontaneous
  Country: IT (occurrence: IT)
  Receive Date: 20210623
  Receipt Date: 20210713
  Transmission Date: 20211014
  Serious: Yes (Hospitalization, Other)
  Sender: FDA-Public Use
  Company Number: IT-ACCORD-229070

PATIENT
  Age: 19 Year
  Sex: Female

DRUGS (3)
  1. CLOZAPINE. [Suspect]
     Active Substance: CLOZAPINE
     Indication: SCHIZOPHRENIA
     Dosage: CLOZAPINE TREATMENT STARTED IN OCTOBER 2017, WITH PROGRESSIVE DOSAGE UP TO 200 MG/DIE
     Dates: start: 201810
  2. CLOZAPINE. [Suspect]
     Active Substance: CLOZAPINE
     Indication: SCHIZOPHRENIA
     Dosage: 1 TABLET 25 MG QD (MORNING)
     Dates: start: 201811, end: 2019
  3. CLOZAPINE. [Suspect]
     Active Substance: CLOZAPINE
     Indication: SCHIZOPHRENIA
     Dosage: 125 MG, 1 TABLET 100 MG QD (EVENING), STRENGTH: 100 MG, 25 MG
     Dates: start: 201811

REACTIONS (4)
  - Erosive oesophagitis [Recovered/Resolved]
  - Merycism [Recovered/Resolved]
  - Regurgitation [Recovered/Resolved]
  - Oesophagitis [Recovered/Resolved]

NARRATIVE: CASE EVENT DATE: 2018
